FAERS Safety Report 6790580-3 (Version None)
Quarter: 2010Q2

REPORT INFORMATION
  Report Type: 
  Country: None (occurrence: None)
  Receive Date: 20100624
  Receipt Date: 20100615
  Transmission Date: 20101027
  Serious: Yes (Hospitalization)
  Sender: FDA-Public Use
  Company Number: GR-SANOFI-AVENTIS-2010SA021099

PATIENT
  Age: 66 Year
  Sex: Female
  Weight: 80 kg

DRUGS (11)
  1. OXALIPLATIN [Suspect]
     Indication: COLORECTAL CANCER
     Route: 041
     Dates: start: 20100303, end: 20100303
  2. FLUOROURACIL [Suspect]
     Indication: COLORECTAL CANCER
     Route: 041
     Dates: start: 20100303, end: 20100303
  3. INVESTIGATIONAL DRUG [Suspect]
     Indication: COLORECTAL CANCER
     Route: 048
     Dates: start: 20100303, end: 20100317
  4. LEUCOVORIN CALCIUM [Concomitant]
     Indication: COLORECTAL CANCER
     Route: 041
     Dates: start: 20100303, end: 20100303
  5. LISINOPRIL AND HYDROCHLOROTHIAZIDE [Concomitant]
     Dosage: 20/12.5 MG
  6. LOVASTATIN [Concomitant]
     Dates: start: 20000101
  7. LEVOTHYROXINE SODIUM [Concomitant]
     Indication: THYROID THERAPY
     Dates: start: 20000101
  8. PREGABALIN [Concomitant]
     Indication: PAIN
     Dates: start: 20091001
  9. LISINOPRIL AND HYDROCHLOROTHIAZIDE [Concomitant]
     Dates: start: 20000101
  10. TRAMADOL HYDROCHLORIDE [Concomitant]
     Indication: PAIN
     Dates: start: 20091001
  11. FENTANYL [Concomitant]
     Indication: PAIN
     Route: 062
     Dates: start: 20091001

REACTIONS (5)
  - DIZZINESS [None]
  - NAUSEA [None]
  - NYSTAGMUS [None]
  - ORTHOSTATIC HYPOTENSION [None]
  - VAGINAL HAEMORRHAGE [None]
